FAERS Safety Report 4588896-4 (Version None)
Quarter: 2005Q1

REPORT INFORMATION
  Report Type: 
  Country: None (occurrence: None)
  Receive Date: 20050216
  Receipt Date: 20050202
  Transmission Date: 20050727
  Serious: Yes (Hospitalization)
  Sender: FDA-Public Use
  Company Number: 2005025429

PATIENT
  Age: 82 Year
  Sex: Female
  Weight: 83.0083 kg

DRUGS (6)
  1. BEXTRA [Suspect]
     Indication: OSTEOARTHRITIS
     Dosage: 10 MG (10 MG, 1 IN 1 D), ORAL
     Route: 048
     Dates: start: 20030101
  2. BEXTRA [Suspect]
     Indication: RHEUMATOID ARTHRITIS
     Dosage: 10 MG (10 MG, 1 IN 1 D), ORAL
     Route: 048
     Dates: start: 20030101
  3. PREDNISONE [Concomitant]
  4. CORTISONE (CORTISONE) [Concomitant]
  5. DRUG, UNSPECIFIED (DRUG, UNSPECIFIED) [Concomitant]
  6. ULTRACET [Concomitant]

REACTIONS (7)
  - ARTHRITIS [None]
  - CONDITION AGGRAVATED [None]
  - DIVERTICULITIS [None]
  - DRUG INEFFECTIVE [None]
  - GALLBLADDER OPERATION [None]
  - GASTROINTESTINAL DISORDER [None]
  - PANCREATITIS [None]
